FAERS Safety Report 4471077-2 (Version None)
Quarter: 2004Q4

REPORT INFORMATION
  Report Type: 
  Country: None (occurrence: None)
  Receive Date: 20041011
  Receipt Date: 20040929
  Transmission Date: 20050328
  Serious: Yes (Life-Threatening, Hospitalization)
  Sender: FDA-Public Use
  Company Number: DE-BRISTOL-MYERS SQUIBB COMPANY-12716205

PATIENT
  Age: 56 Year
  Sex: Female
  Weight: 64 kg

DRUGS (1)
  1. VOLON-A INJ [Suspect]
     Indication: KELOID SCAR
     Dosage: THERAPY DATES:  ^01-JAN TO 01-MAY^
     Route: 058
     Dates: start: 20010101, end: 20010501

REACTIONS (10)
  - DEPRESSION [None]
  - ECCHYMOSIS [None]
  - HYPERHIDROSIS [None]
  - INFECTION IN AN IMMUNOCOMPROMISED HOST [None]
  - LYMPHATIC DISORDER [None]
  - MIGRAINE [None]
  - MUSCLE ATROPHY [None]
  - PETECHIAE [None]
  - PITUITARY-DEPENDENT CUSHING'S SYNDROME [None]
  - SKIN ATROPHY [None]
